FAERS Safety Report 14630418 (Version 1)
Quarter: 2018Q1

REPORT INFORMATION
  Report Type: Spontaneous
  Country: US (occurrence: US)
  Receive Date: 20180313
  Receipt Date: 20180313
  Transmission Date: 20180509
  Serious: Yes (Other)
  Sender: FDA-Public Use
  Company Number: None

PATIENT
  Age: 55 Year
  Sex: Male

DRUGS (1)
  1. COLGATE OPTIC WHITE HIGH IMPACT FLUORIDE [Suspect]
     Active Substance: SODIUM MONOFLUOROPHOSPHATE

REACTIONS (5)
  - Gingival erosion [None]
  - Gingival graft [None]
  - Tooth disorder [None]
  - Oral discomfort [None]
  - Mouth injury [None]
